FAERS Safety Report 8829866 (Version 1)
Quarter: 2012Q4

REPORT INFORMATION
  Report Type: Spontaneous
  Country: CN (occurrence: None)
  Receive Date: 20121004
  Receipt Date: 20121004
  Transmission Date: 20130627
  Serious: Yes (Other)
  Sender: FDA-Public Use
  Company Number: VAL_00887_2012

PATIENT
  Age: 34 Year
  Sex: Female

DRUGS (4)
  1. LOTENSIN [Suspect]
     Indication: GESTATIONAL HYPERTENSION
     Dates: start: 20120602, end: 2012
  2. LOTENSIN [Suspect]
     Indication: GESTATIONAL HYPERTENSION
     Dates: start: 20120622
  3. LOTENSIN [Suspect]
     Indication: GESTATIONAL HYPERTENSION
     Dates: start: 20120710
  4. LOTENSIN [Suspect]
     Indication: GESTATIONAL HYPERTENSION
     Dates: start: 20120712, end: 20120714

REACTIONS (9)
  - Maternal exposure during pregnancy [None]
  - Hypotension [None]
  - Heart rate increased [None]
  - Condition aggravated [None]
  - Constipation [None]
  - Pruritus [None]
  - Arthralgia [None]
  - Blood uric acid increased [None]
  - Renal failure [None]
